FAERS Safety Report 8912357 (Version 1)
Quarter: 2012Q4

REPORT INFORMATION
  Report Type: 
  Country: US (occurrence: US)
  Receive Date: 20121115
  Receipt Date: 20121115
  Transmission Date: 20130627
  Serious: Yes (Other)
  Sender: FDA-Public Use
  Company Number: US-PFIZER INC-2012281246

PATIENT
  Age: 6 Month

DRUGS (10)
  1. CHLORAMPHENICOL SODIUM SUCCINATE [Suspect]
     Dosage: 50 mg/kg/day
     Route: 042
  2. CHLORAMPHENICOL SODIUM SUCCINATE [Suspect]
     Dosage: 100 mg/kg/day
     Route: 042
  3. CHLORAMPHENICOL SODIUM SUCCINATE [Suspect]
     Dosage: 50 ?g/kg/day
  4. CHLORAMPHENICOL SODIUM SUCCINATE [Suspect]
     Dosage: 50 mg/kg/day
  5. AMPICILLIN [Concomitant]
     Dosage: 100 mg/kg/day
     Route: 042
  6. AMPICILLIN [Concomitant]
     Dosage: 200 mg/kg/day
  7. DIGOXIN [Concomitant]
     Dosage: 8?g/kg/day
  8. FUROSEMIDE [Concomitant]
     Dosage: 2 mg/kg, 2x/day
  9. CEPHALEXIN [Concomitant]
     Indication: RHINITIS
     Dosage: 125 mg, 4x/day
  10. CEPHALEXIN [Concomitant]
     Indication: COUGH

REACTIONS (2)
  - Drug level increased [Recovered/Resolved]
  - Left ventricular failure [Recovering/Resolving]
